FAERS Safety Report 5224751-4 (Version None)
Quarter: 2007Q1

REPORT INFORMATION
  Report Type: 
  Country: None (occurrence: None)
  Receive Date: 20070131
  Receipt Date: 20061214
  Transmission Date: 20070707
  Serious: Yes (Other)
  Sender: FDA-Public Use
  Company Number: PHBS2006BE20206

PATIENT
  Age: 45 Year
  Sex: Male

DRUGS (2)
  1. TERBINAFINE [Suspect]
     Indication: FUNGAL SKIN INFECTION
     Dosage: 250 MG/D
     Route: 048
  2. TERBINAFINE [Suspect]
     Dosage: 125 MG/D
     Route: 048

REACTIONS (6)
  - BLOOD IMMUNOGLOBULIN E INCREASED [None]
  - CONDITION AGGRAVATED [None]
  - FUNGAL SKIN INFECTION [None]
  - MALAISE [None]
  - PYREXIA [None]
  - SKIN HYPERPIGMENTATION [None]
